FAERS Safety Report 20755656 (Version 1)
Quarter: 2022Q2

REPORT INFORMATION
  Report Type: Report from Study
  Country: US (occurrence: US)
  Receive Date: 20220427
  Receipt Date: 20220427
  Transmission Date: 20220720
  Serious: Yes (Other)
  Sender: FDA-Public Use
  Company Number: US-ABBVIE-22K-163-4370775-00

PATIENT
  Sex: Female

DRUGS (1)
  1. HUMIRA [Suspect]
     Active Substance: ADALIMUMAB
     Indication: Polyarthritis
     Route: 058
     Dates: start: 2021

REACTIONS (8)
  - Systemic lupus erythematosus [Unknown]
  - Tonsillar inflammation [Unknown]
  - Pharyngeal inflammation [Unknown]
  - Joint swelling [Unknown]
  - Complement factor C3 increased [Unknown]
  - Total complement activity increased [Unknown]
  - Oropharyngeal pain [Not Recovered/Not Resolved]
  - Ageusia [Not Recovered/Not Resolved]

NARRATIVE: CASE EVENT DATE: 20220101
